FAERS Safety Report 17400855 (Version 1)
Quarter: 2020Q1

REPORT INFORMATION
  Report Type: Spontaneous
  Country: US (occurrence: US)
  Receive Date: 20200211
  Receipt Date: 20200211
  Transmission Date: 20200409
  Serious: Yes (Death, Hospitalization, Other)
  Sender: FDA-Public Use
  Company Number: US-CIPLA LTD.-2020US00797

PATIENT

DRUGS (2)
  1. TOPIRAMATE. [Suspect]
     Active Substance: TOPIRAMATE
     Dosage: UNK
     Route: 048
  2. ALCOHOL. [Suspect]
     Active Substance: ALCOHOL
     Dosage: UNK
     Route: 048

REACTIONS (11)
  - Toxicity to various agents [Fatal]
  - Brain oedema [Fatal]
  - Haemodynamic instability [Unknown]
  - Unresponsive to stimuli [Unknown]
  - Brain herniation [Unknown]
  - Hypotension [Unknown]
  - Hypothermia [Unknown]
  - Cerebral hypoperfusion [Unknown]
  - Metabolic acidosis [Unknown]
  - Suspected suicide [Fatal]
  - Seizure [Unknown]
